FAERS Safety Report 5455728-1 (Version None)
Quarter: 2007Q3

REPORT INFORMATION
  Report Type: 
  Country: None (occurrence: None)
  Receive Date: 20070918
  Receipt Date: 20070913
  Transmission Date: 20080115
  Serious: Yes (Other)
  Sender: FDA-Public Use
  Company Number: GB-SP-2007-03063

PATIENT
  Age: 87 Year
  Sex: Male

DRUGS (6)
  1. IMMUCYST [Suspect]
     Indication: BLADDER CANCER RECURRENT
     Route: 065
     Dates: start: 20070830
  2. ASPIRIN [Concomitant]
  3. ATENOLOL [Concomitant]
  4. GTN SPRAY [Concomitant]
  5. ARTHROTEC [Concomitant]
  6. ISTIN [Concomitant]

REACTIONS (6)
  - BODY TEMPERATURE INCREASED [None]
  - BOVINE TUBERCULOSIS [None]
  - DYSPNOEA [None]
  - DYSURIA [None]
  - HYPERHIDROSIS [None]
  - PYREXIA [None]
